FAERS Safety Report 24267765 (Version 3)
Quarter: 2024Q3

REPORT INFORMATION
  Report Type: Spontaneous
  Country: PT (occurrence: PT)
  Receive Date: 20240830
  Receipt Date: 20240928
  Transmission Date: 20241016
  Serious: Yes (Hospitalization)
  Sender: Karo Pharma
  Company Number: PT-Karo Pharma-2160996

PATIENT
  Age: 81 Year
  Sex: Male

DRUGS (2)
  1. TERBINAFINE [Suspect]
     Active Substance: TERBINAFINE
     Indication: Fungal infection
  2. MOMETASONE FUROATE [Suspect]
     Active Substance: MOMETASONE FUROATE

REACTIONS (2)
  - Toxic epidermal necrolysis [Unknown]
  - Toxic skin eruption [Unknown]
